FAERS Safety Report 4429825-3 (Version None)
Quarter: 2004Q3

REPORT INFORMATION
  Report Type: 
  Country: None (occurrence: None)
  Receive Date: 20040817
  Receipt Date: 20040804
  Transmission Date: 20050211
  Serious: Yes (Hospitalization, Other)
  Sender: FDA-Public Use
  Company Number: 2004053120

PATIENT
  Age: 59 Year
  Sex: Male
  Weight: 77.1115 kg

DRUGS (3)
  1. VIAGRA [Suspect]
     Indication: ERECTILE DYSFUNCTION
     Dosage: (100 MG, AS NEEDED)
  2. ALL OTHER THERAPEUTIC PRODUCTS (ALL OTHER THERAPEUTIC PRODUCTS) [Suspect]
     Indication: PROSTATE CANCER
  3. ALLOPURINOL [Concomitant]

REACTIONS (7)
  - AORTIC ANEURYSM [None]
  - BLINDNESS UNILATERAL [None]
  - CEREBROVASCULAR ACCIDENT [None]
  - FALL [None]
  - IRRITABILITY [None]
  - PROSTATE CANCER [None]
  - ULNAR NERVE INJURY [None]
